FAERS Safety Report 11493280 (Version 1)
Quarter: 2015Q3

REPORT INFORMATION
  Report Type: Spontaneous
  Country: CA (occurrence: CA)
  Receive Date: 20150911
  Receipt Date: 20150911
  Transmission Date: 20151125
  Serious: Yes (Hospitalization)
  Sender: FDA-Public Use
  Company Number: CA-009507513-1509CAN002949

PATIENT
  Age: 34 Year
  Sex: Female

DRUGS (2)
  1. ORGALUTRAN [Suspect]
     Active Substance: GANIRELIX ACETATE
     Indication: OVULATION INDUCTION
     Dosage: UNK
     Route: 065
  2. FOLLITROPIN BETA [Suspect]
     Active Substance: FOLLITROPIN
     Indication: OVULATION INDUCTION
     Dosage: 150 MG, QD
     Route: 065
     Dates: start: 20150530, end: 20150603

REACTIONS (7)
  - Overdose [Unknown]
  - Injection site pain [Unknown]
  - Contusion [Unknown]
  - Dysmenorrhoea [Unknown]
  - Pain [Unknown]
  - Vulvovaginal pain [Unknown]
  - Ovarian hyperstimulation syndrome [Unknown]

NARRATIVE: CASE EVENT DATE: 20150530
